FAERS Safety Report 8085795-0 (Version None)
Quarter: 2012Q1

REPORT INFORMATION
  Report Type: 
  Country: None (occurrence: None)
  Receive Date: 20120128
  Receipt Date: 20110517
  Transmission Date: 20120608
  Serious: No
  Sender: FDA-Public Use
  Company Number: US-ABBOTT-11P-163-0716762-00

PATIENT
  Age: 73 Year
  Sex: Female
  Weight: 53.572 kg

DRUGS (5)
  1. PULMICORT [Concomitant]
     Indication: PRODUCT USED FOR UNKNOWN INDICATION
  2. VICODIN [Concomitant]
     Indication: PRODUCT USED FOR UNKNOWN INDICATION
  3. ZYRTEC [Concomitant]
     Indication: PRODUCT USED FOR UNKNOWN INDICATION
  4. HUMIRA [Suspect]
     Indication: CROHN'S DISEASE
     Dates: start: 20110216, end: 20110301
  5. HUMIRA [Suspect]
     Indication: PYODERMA GANGRENOSUM

REACTIONS (2)
  - RASH PRURITIC [None]
  - DRUG INEFFECTIVE [None]
